FAERS Safety Report 5026443-3 (Version None)
Quarter: 2006Q2

REPORT INFORMATION
  Report Type: 
  Country: None (occurrence: None)
  Receive Date: 20060613
  Receipt Date: 20060613
  Transmission Date: 20061013
  Serious: No
  Sender: FDA-Public Use
  Company Number: None

PATIENT
  Age: 37 Year
  Sex: Female
  Weight: 89.1 kg

DRUGS (11)
  1. WARFARIN SODIUM [Suspect]
  2. SERTRALINE HCL [Concomitant]
  3. OMEPRAZOLE [Concomitant]
  4. MORPHINE SO4 [Concomitant]
  5. OXYCODONE AND ACETAMINOPHEN [Concomitant]
  6. GATIFLOXACIN [Concomitant]
  7. LOPERAMIDE HCL [Concomitant]
  8. METRONIDAZOLE [Concomitant]
  9. DOCUSATE NA [Concomitant]
  10. ACETAMINOPHEN AND HYDROCODONE BITARTRATE [Concomitant]
  11. PROCHLORPERAZINE MALEATE [Concomitant]

REACTIONS (1)
  - HAEMORRHAGE [None]
